FAERS Safety Report 12661100 (Version 2)
Quarter: 2016Q3

REPORT INFORMATION
  Report Type: Spontaneous
  Country: US (occurrence: US)
  Receive Date: 20160817
  Receipt Date: 20160901
  Transmission Date: 20161109
  Serious: No
  Sender: FDA-Public Use
  Company Number: US-RELYPSA-RLY2016000568

PATIENT
  Sex: Male

DRUGS (22)
  1. ALBUTEROL                          /00139501/ [Concomitant]
     Active Substance: ALBUTEROL
  2. DALIRESP [Concomitant]
     Active Substance: ROFLUMILAST
  3. DRISDOL [Concomitant]
     Active Substance: ERGOCALCIFEROL
  4. VITAMIN D3 [Concomitant]
     Active Substance: CHOLECALCIFEROL
  5. CO Q 10                            /00517201/ [Concomitant]
  6. CINNAMON                           /01647501/ [Concomitant]
     Active Substance: CINNAMON
  7. LABETALOL HCL [Concomitant]
     Active Substance: LABETALOL HYDROCHLORIDE
  8. NOVOLOG [Concomitant]
     Active Substance: INSULIN ASPART
  9. OMEPRAZOLE. [Concomitant]
     Active Substance: OMEPRAZOLE
  10. SIMVASTATIN. [Concomitant]
     Active Substance: SIMVASTATIN
  11. ASPIRIN                            /00002701/ [Concomitant]
     Active Substance: ASPIRIN
  12. DILTIAZEM HCL EXTE-REL [Concomitant]
     Active Substance: DILTIAZEM HYDROCHLORIDE
  13. HYDROCODONE BITARTRATE AND ACETAMINOPHEN [Concomitant]
     Active Substance: ACETAMINOPHEN\HYDROCODONE BITARTRATE
  14. TUDORZA PRESSAIR [Concomitant]
     Active Substance: ACLIDINIUM BROMIDE
  15. FUROSEMIDE. [Concomitant]
     Active Substance: FUROSEMIDE
  16. GLUCOSAMINE CHONDROITIN COMPLEX    /06278301/ [Concomitant]
  17. SYMBICORT [Concomitant]
     Active Substance: BUDESONIDE\FORMOTEROL FUMARATE DIHYDRATE
  18. VELTASSA [Suspect]
     Active Substance: PATIROMER
     Indication: HYPERKALAEMIA
     Dosage: 8.4 G, QD
     Route: 048
     Dates: start: 20160414
  19. LUCENTIS [Concomitant]
     Active Substance: RANIBIZUMAB
  20. LANTUS [Concomitant]
     Active Substance: INSULIN GLARGINE
  21. LOSARTAN POTASSIUM. [Concomitant]
     Active Substance: LOSARTAN POTASSIUM
  22. RANITIDINE HCL [Concomitant]
     Active Substance: RANITIDINE HYDROCHLORIDE

REACTIONS (1)
  - Blood glucose increased [Unknown]
